FAERS Safety Report 11272225 (Version 1)
Quarter: 2015Q2

REPORT INFORMATION
  Report Type: Spontaneous
  Country: US (occurrence: None)
  Receive Date: 20150625
  Receipt Date: 20150625
  Transmission Date: 20150821
  Serious: No
  Sender: FDA-Public Use
  Company Number: A-US2014-107249

PATIENT
  Age: 49 Year
  Sex: Female

DRUGS (2)
  1. CIALIS [Concomitant]
     Active Substance: TADALAFIL
  2. OPSUMIT [Suspect]
     Active Substance: MACITENTAN
     Indication: PULMONARY ARTERIAL HYPERTENSION
     Route: 048
     Dates: start: 20141022

REACTIONS (8)
  - Presyncope [None]
  - Oedema peripheral [None]
  - Nausea [None]
  - Chest pain [None]
  - Dyspnoea [None]
  - Fatigue [None]
  - Abdominal distension [None]
  - Abdominal hernia [None]
